FAERS Safety Report 5897290-5 (Version None)
Quarter: 2008Q3

REPORT INFORMATION
  Report Type: 
  Country: None (occurrence: None)
  Receive Date: 20080924
  Receipt Date: 20080924
  Transmission Date: 20090109
  Serious: Yes (Other)
  Sender: FDA-Public Use
  Company Number: None

PATIENT
  Age: 54 Year
  Sex: Female
  Weight: 77.1115 kg

DRUGS (3)
  1. SIMVASTATIN [Suspect]
     Indication: BLOOD CHOLESTEROL INCREASED
     Dosage: 40 MG 1 AT BEDTIME  PO
     Route: 048
     Dates: start: 20080818, end: 20080818
  2. SIMVASTATIN [Suspect]
     Indication: BLOOD TRIGLYCERIDES INCREASED
     Dosage: 40 MG 1 AT BEDTIME  PO
     Route: 048
     Dates: start: 20080818, end: 20080818
  3. SIMVASTATIN [Suspect]
     Indication: BLOOD CHOLESTEROL INCREASED
     Dosage: 20 MG 1 AT BEDTIME  PO
     Route: 048
     Dates: start: 20080918

REACTIONS (5)
  - ARTHRALGIA [None]
  - BACK PAIN [None]
  - DYSSTASIA [None]
  - PAIN [None]
  - PAIN IN EXTREMITY [None]
